FAERS Safety Report 5861936-8 (Version None)
Quarter: 2008Q3

REPORT INFORMATION
  Report Type: 
  Country: None (occurrence: None)
  Receive Date: 20080827
  Receipt Date: 20080723
  Transmission Date: 20090109
  Serious: No
  Sender: FDA-Public Use
  Company Number: US-ABBOTT-08P-163-0464883-00

PATIENT
  Sex: Male

DRUGS (5)
  1. NIASPAN [Suspect]
     Indication: HIGH DENSITY LIPOPROTEIN DECREASED
     Route: 048
     Dates: start: 20060101, end: 20070101
  2. NIASPAN [Suspect]
     Route: 048
     Dates: start: 20070101, end: 20080406
  3. NIASPAN [Suspect]
     Route: 048
     Dates: start: 20070407, end: 20080612
  4. LISINOPRIL [Concomitant]
     Indication: DRUG USE FOR UNKNOWN INDICATION
  5. LOVAZA [Concomitant]
     Indication: DRUG USE FOR UNKNOWN INDICATION

REACTIONS (3)
  - BLOOD AMYLASE INCREASED [None]
  - NAUSEA [None]
  - VOMITING [None]
